FAERS Safety Report 9134995 (Version 19)
Quarter: 2015Q2

REPORT INFORMATION
  Report Type: Spontaneous
  Country: US (occurrence: US)
  Receive Date: 20130304
  Receipt Date: 20150406
  Transmission Date: 20150821
  Serious: Yes (Other)
  Sender: FDA-Public Use
  Company Number: US-PFIZER INC-2013067500

PATIENT
  Age: 81 Year
  Sex: Female
  Weight: 76.64 kg

DRUGS (13)
  1. XALATAN [Suspect]
     Active Substance: LATANOPROST
     Indication: GLAUCOMA
     Dosage: 1 GTT, 1X/DAY (1 DROP IN EACH EYE, 1X/DAY)
     Route: 047
     Dates: start: 2008
  2. XALATAN [Suspect]
     Active Substance: LATANOPROST
     Indication: RETINAL DEGENERATION
     Dosage: 2 GTT, 1X/DAY
     Route: 047
     Dates: start: 2010
  3. ARICEPT [Concomitant]
     Active Substance: DONEPEZIL HYDROCHLORIDE
     Dosage: UNK
  4. AMITRIPTYLINE [Concomitant]
     Active Substance: AMITRIPTYLINE
     Dosage: UNK, 1X/DAY
  5. LOW DOSE ASPIRIN [Concomitant]
     Active Substance: ASPIRIN
     Dosage: UNK
  6. ELAVIL [Concomitant]
     Active Substance: AMITRIPTYLINE HYDROCHLORIDE
     Indication: SLEEP DISORDER
     Dosage: UNK, DAILY
  7. XALATAN [Suspect]
     Active Substance: LATANOPROST
     Indication: MACULAR DEGENERATION
     Dosage: UNK, 1X/DAY
     Route: 047
  8. DORZOLAMIDE [Concomitant]
     Active Substance: DORZOLAMIDE
     Indication: EYE DISORDER
     Dosage: 1 GTT, 3X/DAY
  9. XALATAN [Suspect]
     Active Substance: LATANOPROST
     Indication: VISUAL IMPAIRMENT
     Dosage: UNK,1X/DAY
     Route: 047
  10. XALATAN [Suspect]
     Active Substance: LATANOPROST
     Dosage: UNK
  11. XALATAN [Suspect]
     Active Substance: LATANOPROST
     Dosage: 1 DROP IN EACH EYE DAILY AT NIGHT
     Dates: start: 2009
  12. XALATAN [Suspect]
     Active Substance: LATANOPROST
     Indication: INTRAOCULAR PRESSURE INCREASED
     Dosage: 1 DROP IN EACH EYE DAILY
     Route: 047
  13. XALATAN [Suspect]
     Active Substance: LATANOPROST
     Indication: GLAUCOMA
     Dosage: 1 GTT, 1X/DAY
     Route: 047
     Dates: start: 2008

REACTIONS (13)
  - Gait disturbance [Not Recovered/Not Resolved]
  - Visual impairment [Not Recovered/Not Resolved]
  - Deafness [Not Recovered/Not Resolved]
  - Visual acuity reduced [Not Recovered/Not Resolved]
  - Vision blurred [Not Recovered/Not Resolved]
  - Incorrect dose administered [Unknown]
  - Product container issue [Unknown]
  - Cerebrovascular accident [Unknown]
  - Intraocular pressure test abnormal [Not Recovered/Not Resolved]
  - Eye discharge [Not Recovered/Not Resolved]
  - Dementia Alzheimer^s type [Not Recovered/Not Resolved]
  - Amnesia [Unknown]
  - Drug dose omission [Unknown]

NARRATIVE: CASE EVENT DATE: 2012
